FAERS Safety Report 10945725 (Version 1)
Quarter: 2015Q1

REPORT INFORMATION
  Report Type: Spontaneous
  Country: US (occurrence: None)
  Receive Date: 20150212
  Receipt Date: 20150212
  Transmission Date: 20150721
  Serious: No
  Sender: FDA-Public Use
  Company Number: TPA2011A01740

PATIENT
  Age: 71 Year
  Sex: Male
  Weight: 92.99 kg

DRUGS (3)
  1. ULORIC [Suspect]
     Active Substance: FEBUXOSTAT
     Indication: GOUT
     Route: 048
     Dates: start: 201006, end: 20110412
  2. LOVASTATIN. [Concomitant]
     Active Substance: LOVASTATIN
  3. ALENDRONATE (ALENDRONATE SODIUM) [Concomitant]
     Active Substance: ALENDRONATE SODIUM

REACTIONS (2)
  - Blood uric acid decreased [None]
  - Dizziness [None]

NARRATIVE: CASE EVENT DATE: 201101
